FAERS Safety Report 8410196-2 (Version None)
Quarter: 2012Q2

REPORT INFORMATION
  Report Type: 
  Country: None (occurrence: None)
  Receive Date: 20120605
  Receipt Date: 20120530
  Transmission Date: 20120825
  Serious: Yes (Death)
  Sender: FDA-Public Use
  Company Number: PHEH2009US10217

PATIENT
  Sex: Male

DRUGS (1)
  1. GLEEVEC [Suspect]
     Indication: GASTROINTESTINAL CARCINOMA
     Dosage: 400 MG, DAILY
     Route: 048
     Dates: start: 20090728

REACTIONS (5)
  - NAUSEA [None]
  - MUSCULOSKELETAL PAIN [None]
  - DEATH [None]
  - SKIN IRRITATION [None]
  - NECK PAIN [None]
